FAERS Safety Report 21841780 (Version 1)
Quarter: 2023Q1

REPORT INFORMATION
  Report Type: Spontaneous
  Country: US (occurrence: US)
  Receive Date: 20230110
  Receipt Date: 20230110
  Transmission Date: 20230418
  Serious: Yes (Hospitalization)
  Sender: FDA-Public Use
  Company Number: US-BANNER LIFE SCIENCES, LLC-2022BAN000316

PATIENT

DRUGS (5)
  1. BAFIERTAM [Suspect]
     Active Substance: MONOMETHYL FUMARATE
     Indication: Multiple sclerosis
     Dosage: UNK
     Route: 048
     Dates: start: 202203, end: 202212
  2. BAFIERTAM [Suspect]
     Active Substance: MONOMETHYL FUMARATE
     Dosage: UNK
     Route: 048
     Dates: start: 20221216, end: 20221218
  3. BAFIERTAM [Suspect]
     Active Substance: MONOMETHYL FUMARATE
     Dosage: UNK
     Route: 048
     Dates: start: 20221221, end: 20221223
  4. ASPIRIN [Concomitant]
     Active Substance: ASPIRIN
     Indication: Product used for unknown indication
     Dosage: 325 MILLIGRAM
     Dates: end: 2022
  5. ASPIRIN [Concomitant]
     Active Substance: ASPIRIN
     Dosage: 81 MILLIGRAM, QD
     Dates: start: 202212

REACTIONS (3)
  - Myocardial infarction [Unknown]
  - Transient ischaemic attack [Unknown]
  - Flushing [Unknown]

NARRATIVE: CASE EVENT DATE: 20221207
